FAERS Safety Report 9435653 (Version 1)
Quarter: 2013Q3

REPORT INFORMATION
  Report Type: Spontaneous
  Country: US (occurrence: US)
  Receive Date: 20130801
  Receipt Date: 20130801
  Transmission Date: 20140515
  Serious: Yes (Hospitalization)
  Sender: FDA-Public Use
  Company Number: US-ALLERGAN-1311140US

PATIENT
  Sex: Female

DRUGS (3)
  1. BOTOX? [Suspect]
     Indication: SKIN WRINKLING
     Dosage: UNK, SINGLE
     Dates: start: 20130214, end: 20130214
  2. BOTOX? [Suspect]
     Indication: SKIN WRINKLING
  3. JUVEDERM ULTRA PLUS XC [Suspect]
     Indication: SKIN WRINKLING

REACTIONS (2)
  - Cellulitis [Recovered/Resolved]
  - Rash [Recovered/Resolved]
